FAERS Safety Report 5840270-6 (Version None)
Quarter: 2008Q3

REPORT INFORMATION
  Report Type: 
  Country: None (occurrence: None)
  Receive Date: 20080730
  Receipt Date: 20080612
  Transmission Date: 20090109
  Serious: No
  Sender: FDA-Public Use
  Company Number: 2008-US-000313

PATIENT
  Age: 10 Year
  Sex: Male

DRUGS (1)
  1. INCRELEX [Suspect]
     Dosage: 120 UG/KG

REACTIONS (2)
  - RASH [None]
  - URTICARIA [None]
